FAERS Safety Report 4987871-5 (Version None)
Quarter: 2006Q2

REPORT INFORMATION
  Report Type: 
  Country: None (occurrence: None)
  Receive Date: 20060424
  Receipt Date: 20060406
  Transmission Date: 20061013
  Serious: Yes (Hospitalization)
  Sender: FDA-Public Use
  Company Number: 8016241

PATIENT
  Sex: Male

DRUGS (2)
  1. KEPPRA [Suspect]
  2. VALPROATE SODIUM [Suspect]

REACTIONS (1)
  - PANCYTOPENIA [None]
